FAERS Safety Report 20534265 (Version 8)
Quarter: 2023Q1

REPORT INFORMATION
  Report Type: Other
  Country: TR (occurrence: None)
  Receive Date: 20220301
  Receipt Date: 20230331
  Transmission Date: 20230418
  Serious: Yes (Other)
  Sender: FDA-Public Use
  Company Number: TR-ROCHE-3027786

PATIENT
  Age: 70 Year
  Sex: Female
  Weight: 75 kg

DRUGS (16)
  1. GLOFITAMAB [Suspect]
     Active Substance: GLOFITAMAB
     Indication: Diffuse large B-cell lymphoma
     Dosage: C1D8?EACH TREATMENT CYCLE LASTS FOR 21 DAYS?ON DAY 15, 10 MG DOSE ADMINISTERED?FROM THE 2ND CYCLE TI
     Route: 042
     Dates: start: 20220208, end: 20220208
  2. GLOFITAMAB [Suspect]
     Active Substance: GLOFITAMAB
     Dosage: C1D15
     Route: 042
     Dates: start: 20220222
  3. GLOFITAMAB [Suspect]
     Active Substance: GLOFITAMAB
     Dosage: C2
     Route: 042
     Dates: start: 20220303
  4. GLOFITAMAB [Suspect]
     Active Substance: GLOFITAMAB
     Dosage: C3
     Route: 042
     Dates: start: 20220324
  5. GLOFITAMAB [Suspect]
     Active Substance: GLOFITAMAB
     Dosage: C4
     Route: 042
     Dates: start: 20220429
  6. GLOFITAMAB [Suspect]
     Active Substance: GLOFITAMAB
     Dosage: C5
     Route: 042
     Dates: start: 20220520
  7. GLOFITAMAB [Suspect]
     Active Substance: GLOFITAMAB
     Dosage: C6
     Route: 042
     Dates: start: 20220610
  8. GLOFITAMAB [Suspect]
     Active Substance: GLOFITAMAB
     Dosage: C7
     Route: 042
     Dates: start: 20220701
  9. GLOFITAMAB [Suspect]
     Active Substance: GLOFITAMAB
     Dosage: C8
     Route: 042
     Dates: start: 20220822
  10. GLOFITAMAB [Suspect]
     Active Substance: GLOFITAMAB
     Dosage: C1D1
     Route: 042
     Dates: start: 20220201
  11. GLOFITAMAB [Suspect]
     Active Substance: GLOFITAMAB
     Dosage: C8
     Route: 042
     Dates: start: 20220722
  12. OBINUTUZUMAB [Suspect]
     Active Substance: OBINUTUZUMAB
     Indication: Diffuse large B-cell lymphoma
     Dosage: EACH TREATMENT CYCLE LASTS FOR 21 DAYS
     Route: 042
     Dates: start: 20220201, end: 20220201
  13. LENOGRASTIM [Concomitant]
     Active Substance: LENOGRASTIM
     Indication: Neutropenia
     Dosage: 34 UNIT
     Route: 058
     Dates: start: 20220208, end: 20220209
  14. TAZERACIN [Concomitant]
     Indication: Pyrexia
     Route: 042
     Dates: start: 20220208, end: 20220210
  15. LANSOTER [Concomitant]
     Route: 042
     Dates: start: 20220207, end: 20220211
  16. DEKORT [Concomitant]
     Active Substance: DEXAMETHASONE
     Indication: Prophylaxis
     Route: 042
     Dates: start: 20220209, end: 20220211

REACTIONS (4)
  - Cytokine release syndrome [Recovered/Resolved]
  - Herpes zoster [Recovered/Resolved]
  - Pneumonia [Not Recovered/Not Resolved]
  - Pseudomonas infection [Not Recovered/Not Resolved]

NARRATIVE: CASE EVENT DATE: 20220209
